FAERS Safety Report 14098553 (Version 1)
Quarter: 2017Q4

REPORT INFORMATION
  Report Type: Spontaneous
  Country: US (occurrence: US)
  Receive Date: 20171017
  Receipt Date: 20171017
  Transmission Date: 20180321
  Serious: Yes (Other)
  Sender: FDA-Public Use
  Company Number: US-KRKA, D.D., NOVO MESTO-2030311

PATIENT
  Age: 48 Year
  Sex: Male

DRUGS (3)
  1. ENALAPRIL WORLD [Suspect]
     Active Substance: ENALAPRIL
     Indication: HYPERTENSION
  2. LOSARTAN. [Suspect]
     Active Substance: LOSARTAN
  3. PANTOPRAZOLE SODIUM. [Concomitant]
     Active Substance: PANTOPRAZOLE SODIUM

REACTIONS (3)
  - Cough [Unknown]
  - Labelled drug-drug interaction medication error [Recovering/Resolving]
  - Intestinal angioedema [Recovering/Resolving]
